FAERS Safety Report 7619017-9 (Version None)
Quarter: 2011Q3

REPORT INFORMATION
  Report Type: 
  Country: None (occurrence: None)
  Receive Date: 20110718
  Receipt Date: 20110707
  Transmission Date: 20111222
  Serious: Yes (Hospitalization)
  Sender: FDA-Public Use
  Company Number: DE-ASTRAZENECA-2011SE41371

PATIENT
  Sex: Male

DRUGS (3)
  1. SEROQUEL XR [Suspect]
     Route: 048
     Dates: start: 20090101, end: 20110101
  2. SEROQUEL XR [Suspect]
     Route: 048
     Dates: start: 20110101
  3. SERTRALIN [Concomitant]
     Dosage: 200-250 MG DAILY
     Route: 048

REACTIONS (4)
  - DEPRESSION [None]
  - DYSARTHRIA [None]
  - COMPULSIONS [None]
  - DYSKINESIA [None]
